FAERS Safety Report 18352618 (Version 1)
Quarter: 2020Q4

REPORT INFORMATION
  Report Type: Spontaneous
  Country: US (occurrence: US)
  Receive Date: 20201006
  Receipt Date: 20201006
  Transmission Date: 20210114
  Serious: No
  Sender: FDA-Public Use
  Company Number: US-009507513-2010USA001689

PATIENT
  Sex: Female
  Weight: 53.52 kg

DRUGS (8)
  1. KEYTRUDA [Suspect]
     Active Substance: PEMBROLIZUMAB
  2. ASCORBIC ACID. [Concomitant]
     Active Substance: ASCORBIC ACID
     Route: 048
  3. CALCIUM (UNSPECIFIED) [Concomitant]
     Active Substance: CALCIUM
     Route: 048
  4. FISH OIL [Concomitant]
     Active Substance: FISH OIL
     Dosage: 100-150 MILLIGRAM
     Route: 048
  5. LENVATINIB MESYLATE [Suspect]
     Active Substance: LENVATINIB MESYLATE
     Indication: ENDOMETRIAL CANCER
     Dosage: 20 MILLIGRAM, QD
     Route: 048
     Dates: start: 20200721
  6. MANUKA HONEY [Concomitant]
  7. VITAMINS (UNSPECIFIED) [Concomitant]
     Active Substance: VITAMINS
     Route: 048
  8. CHOLECALCIFEROL [Concomitant]
     Active Substance: CHOLECALCIFEROL
     Route: 048

REACTIONS (5)
  - Dysphonia [Not Recovered/Not Resolved]
  - Blood pressure abnormal [Unknown]
  - Pain [Recovering/Resolving]
  - Dyspnoea [Unknown]
  - Rash [Not Recovered/Not Resolved]

NARRATIVE: CASE EVENT DATE: 2020
